FAERS Safety Report 24782341 (Version 2)
Quarter: 2025Q3

REPORT INFORMATION
  Report Type: Report from Study
  Country: TW (occurrence: TW)
  Receive Date: 20241227
  Receipt Date: 20250803
  Transmission Date: 20251021
  Serious: Yes (Other)
  Sender: ALEXION PHARMACEUTICALS
  Company Number: TW-AstraZeneca-CH-00773907A

PATIENT
  Sex: Female

DRUGS (1)
  1. DURVALUMAB [Suspect]
     Active Substance: DURVALUMAB
     Dosage: 960 MILLIGRAM, Q4W
     Dates: start: 20240531

REACTIONS (6)
  - Syncope [Unknown]
  - Hepatic cirrhosis [Unknown]
  - Thrombosis [Unknown]
  - Visual impairment [Unknown]
  - Asthma [Unknown]
  - Dizziness [Unknown]
